FAERS Safety Report 20719479 (Version 1)
Quarter: 2022Q2

REPORT INFORMATION
  Report Type: Spontaneous
  Country: PL (occurrence: PL)
  Receive Date: 20220418
  Receipt Date: 20220418
  Transmission Date: 20220721
  Serious: Yes (Other)
  Sender: FDA-Public Use
  Company Number: PL-NOVARTISPH-NVSC2022PL086379

PATIENT
  Age: 33 Year
  Sex: Female

DRUGS (6)
  1. TACROLIMUS [Suspect]
     Active Substance: TACROLIMUS
     Indication: Polycystic ovaries
     Dosage: UNK, QD
     Route: 048
  2. METFORMIN [Concomitant]
     Active Substance: METFORMIN HYDROCHLORIDE
     Indication: Polycystic ovaries
     Dosage: 500-1500 MG, UNKNOWN
     Route: 048
  3. ACETYLCYSTEINE [Concomitant]
     Active Substance: ACETYLCYSTEINE
     Indication: Polycystic ovaries
     Dosage: 400 MG, UNKNOWN
     Route: 048
  4. ASPIRIN [Concomitant]
     Active Substance: ASPIRIN
     Indication: Polycystic ovaries
     Dosage: 75-150 MG, UNKNOWN
     Route: 048
  5. INOSITOL [Concomitant]
     Active Substance: INOSITOL
     Indication: Polycystic ovaries
     Dosage: 1000-2000 MG, UNKNOWN
     Route: 048
  6. ENOXAPARIN [Concomitant]
     Active Substance: ENOXAPARIN
     Indication: Polycystic ovaries
     Dosage: 40 MG, UNKNOWN
     Route: 058

REACTIONS (2)
  - COVID-19 [Unknown]
  - Off label use [Unknown]
